FAERS Safety Report 26174025 (Version 1)
Quarter: 2025Q4

REPORT INFORMATION
  Report Type: Spontaneous
  Country: EU (occurrence: EU)
  Receive Date: 20251218
  Receipt Date: 20251218
  Transmission Date: 20260118
  Serious: Yes (Hospitalization)
  Sender: Kenvue
  Company Number: EU-KENVUE-20251204050

PATIENT

DRUGS (1)
  1. MINOXIDIL [Suspect]
     Active Substance: MINOXIDIL
     Indication: Alopecia
     Dosage: 6 PUMP STROKES, USED ONCE (SINGLE)
     Route: 048

REACTIONS (3)
  - Drug intolerance [Recovering/Resolving]
  - Off label use [Unknown]
  - Drug hypersensitivity [Recovering/Resolving]
